FAERS Safety Report 11274845 (Version 2)
Quarter: 2015Q3

REPORT INFORMATION
  Report Type: Spontaneous
  Country: IT (occurrence: IT)
  Receive Date: 20150716
  Receipt Date: 20150916
  Transmission Date: 20151125
  Serious: Yes (Hospitalization, Other)
  Sender: FDA-Public Use
  Company Number: IT-ROCHE-1608489

PATIENT
  Age: 88 Year
  Sex: Female

DRUGS (2)
  1. LUCENTIS [Suspect]
     Active Substance: RANIBIZUMAB
     Indication: MACULAR DEGENERATION
     Dosage: 1 DF (DOSAGE FORM)
     Route: 031
     Dates: start: 20140708, end: 20150427
  2. ASCRIPTIN [Concomitant]
     Active Substance: ASPIRIN

REACTIONS (3)
  - Humerus fracture [Recovered/Resolved]
  - Cerebrovascular accident [Recovered/Resolved]
  - Fall [Unknown]

NARRATIVE: CASE EVENT DATE: 20150510
